FAERS Safety Report 5213298-7 (Version None)
Quarter: 2007Q1

REPORT INFORMATION
  Report Type: 
  Country: None (occurrence: None)
  Receive Date: 20070118
  Receipt Date: 20070118
  Transmission Date: 20070707
  Serious: Yes (Hospitalization)
  Sender: FDA-Public Use
  Company Number: None

PATIENT
  Sex: Male

DRUGS (16)
  1. WARFARIN SODIUM [Suspect]
     Indication: ATRIAL FLUTTER
     Dosage: 3.5 MG  DAILY  PO
     Route: 048
  2. AZITHROMYCIN [Suspect]
     Indication: CHRONIC OBSTRUCTIVE PULMONARY DISEASE
     Dosage: 250 MG DAILY  PO
     Route: 048
     Dates: start: 20061008, end: 20061012
  3. ALBUTEROL [Concomitant]
  4. ASPIRIN [Concomitant]
  5. CLONIDINE [Concomitant]
  6. DILTIAZEM HCL [Concomitant]
  7. DOCUSATE [Concomitant]
  8. FUROSEMIDE [Concomitant]
  9. INSULIN [Concomitant]
  10. IPRATROPIUM BROMIDE [Concomitant]
  11. LEVOTHYROXINE SODIUM [Concomitant]
  12. LISINOPRIL [Concomitant]
  13. MOMETASONE FUROATE [Concomitant]
  14. PREDNISONE TAB [Concomitant]
  15. RANITIDINE [Concomitant]
  16. SIMVASTATIN [Concomitant]

REACTIONS (2)
  - GASTROINTESTINAL HAEMORRHAGE [None]
  - INTERNATIONAL NORMALISED RATIO INCREASED [None]
